FAERS Safety Report 5932309-4 (Version None)
Quarter: 2008Q4

REPORT INFORMATION
  Report Type: 
  Country: None (occurrence: None)
  Receive Date: 20081023
  Receipt Date: 20081016
  Transmission Date: 20090506
  Serious: Yes (Death)
  Sender: FDA-Public Use
  Company Number: 2008-185473-NL

PATIENT
  Age: 53 Year
  Sex: Male

DRUGS (2)
  1. MIRTAZAPINE [Suspect]
     Dosage: ORAL
     Route: 048
  2. QUETIAPINE FUMARATE [Suspect]
     Dosage: ORAL
     Route: 048

REACTIONS (2)
  - CARDIAC ARREST [None]
  - RESPIRATORY DISORDER [None]
